FAERS Safety Report 10070848 (Version 2)
Quarter: 2014Q4

REPORT INFORMATION
  Report Type: Report from Study
  Country: JP (occurrence: JP)
  Receive Date: 20140410
  Receipt Date: 20141106
  Transmission Date: 20150528
  Serious: Yes (Hospitalization)
  Sender: FDA-Public Use
  Company Number: JP-ASTRAZENECA-2014SE24086

PATIENT
  Age: 23418 Day
  Sex: Female
  Weight: 42.9 kg

DRUGS (2)
  1. ZD6474 [Suspect]
     Active Substance: VANDETANIB
     Indication: NON-SMALL CELL LUNG CANCER
     Route: 048
     Dates: start: 20130625, end: 20130730
  2. BIO-THREE [Suspect]
     Active Substance: HERBALS
     Indication: DIARRHOEA
     Dosage: THREE TIMES A DAY
     Route: 048
     Dates: start: 20130704

REACTIONS (2)
  - Electrocardiogram QT prolonged [Recovered/Resolved]
  - Pneumonia bacterial [Recovered/Resolved]

NARRATIVE: CASE EVENT DATE: 20130730
